FAERS Safety Report 5682888-X (Version None)
Quarter: 2008Q1

REPORT INFORMATION
  Report Type: 
  Country: None (occurrence: None)
  Receive Date: 20080327
  Receipt Date: 20080318
  Transmission Date: 20080703
  Serious: Yes (Hospitalization)
  Sender: FDA-Public Use
  Company Number: US-WYE-H03174708

PATIENT
  Sex: Female
  Weight: 59.93 kg

DRUGS (3)
  1. PREMARIN [Suspect]
     Indication: HORMONE REPLACEMENT THERAPY
     Route: 048
     Dates: start: 19840101
  2. VERAPAMIL [Concomitant]
     Dosage: UNKNOWN
     Route: 065
  3. EFFEXOR XR [Suspect]
     Route: 048
     Dates: start: 20040101

REACTIONS (4)
  - CEREBROVASCULAR ACCIDENT [None]
  - ENCEPHALITIS [None]
  - MENINGITIS [None]
  - TRIGEMINAL NEURALGIA [None]
